FAERS Safety Report 7458585-7 (Version None)
Quarter: 2011Q2

REPORT INFORMATION
  Report Type: 
  Country: None (occurrence: None)
  Receive Date: 20110504
  Receipt Date: 20110428
  Transmission Date: 20111010
  Serious: Yes (Death)
  Sender: FDA-Public Use
  Company Number: TR-PFIZER INC-2011087559

PATIENT
  Age: 67 Year
  Sex: Male

DRUGS (5)
  1. TARGOCID [Suspect]
     Dosage: 400 MG, UNK
     Route: 042
     Dates: start: 20090618, end: 20090623
  2. SULPERAZON [Suspect]
     Dosage: 6 MG, UNK
     Route: 042
     Dates: start: 20090614, end: 20090618
  3. FLAGYL [Suspect]
     Dosage: 1.5 MG, UNK
     Route: 042
     Dates: start: 20090615, end: 20090623
  4. MEROPENEM [Suspect]
     Dosage: 6 MG, UNK
     Route: 042
     Dates: start: 20090618, end: 20090623
  5. COLISTIN [Suspect]
     Dosage: 6 M/U
     Dates: start: 20090618, end: 20090623

REACTIONS (1)
  - DEATH [None]
